FAERS Safety Report 6530922-7 (Version None)
Quarter: 2010Q1

REPORT INFORMATION
  Report Type: 
  Country: None (occurrence: None)
  Receive Date: 20100108
  Receipt Date: 20090701
  Transmission Date: 20100710
  Serious: No
  Sender: FDA-Public Use
  Company Number: A0789273A

PATIENT
  Age: 68 Year
  Sex: Female
  Weight: 64.1 kg

DRUGS (1)
  1. LOVAZA [Suspect]
     Dosage: 4G PER DAY
     Route: 048
     Dates: start: 20081007, end: 20090303

REACTIONS (3)
  - BREAST ENGORGEMENT [None]
  - BREAST ENLARGEMENT [None]
  - BREAST PAIN [None]
